FAERS Safety Report 21562603 (Version 3)
Quarter: 2022Q4

REPORT INFORMATION
  Report Type: Report from Study
  Country: US (occurrence: US)
  Receive Date: 20221107
  Receipt Date: 20221223
  Transmission Date: 20230113
  Serious: Yes (Other)
  Sender: FDA-Public Use
  Company Number: US-GILEAD-2022-0603934

PATIENT
  Age: 77 Year
  Sex: Female
  Weight: 54.875 kg

DRUGS (4)
  1. SACITUZUMAB GOVITECAN-HZIY [Suspect]
     Active Substance: SACITUZUMAB GOVITECAN-HZIY
     Indication: Breast cancer metastatic
     Dosage: 546 MG/KG DAY 1, DAY 8, 1 WEEK OFF
     Route: 042
     Dates: start: 20221026, end: 20221102
  2. SACITUZUMAB GOVITECAN-HZIY [Suspect]
     Active Substance: SACITUZUMAB GOVITECAN-HZIY
     Dosage: DOSE REDUCED BY 25%
     Route: 042
     Dates: start: 20221109
  3. SACITUZUMAB GOVITECAN-HZIY [Suspect]
     Active Substance: SACITUZUMAB GOVITECAN-HZIY
     Dosage: 273 MG, , DAY 1, DAY 8, 1 WEEK OFF
     Route: 042
     Dates: start: 20221123, end: 20221221
  4. PEMBROLIZUMAB [Suspect]
     Active Substance: PEMBROLIZUMAB
     Indication: Breast cancer metastatic
     Dosage: 200 MG, Q21 DAYS
     Route: 042
     Dates: start: 20221026

REACTIONS (1)
  - Drug-induced liver injury [Unknown]

NARRATIVE: CASE EVENT DATE: 20221102
